FAERS Safety Report 5287582-5 (Version None)
Quarter: 2007Q1

REPORT INFORMATION
  Report Type: 
  Country: None (occurrence: None)
  Receive Date: 20070126
  Receipt Date: 20050819
  Transmission Date: 20070707
  Serious: No
  Sender: FDA-Public Use
  Company Number: 2006CT001150

PATIENT
  Age: 69 Year
  Sex: Female
  Weight: 71.7 kg

DRUGS (9)
  1. VENTAVIS [Suspect]
     Indication: PULMONARY HYPERTENSION
     Dosage: 2.5 UG 6XD INH
     Route: 055
     Dates: start: 20050728, end: 20050819
  2. ESTRADIOL [Concomitant]
  3. PRIMIDONE [Concomitant]
  4. ALBUTEROL [Concomitant]
  5. VITAMIN CAP [Concomitant]
  6. SPIRONOLACTONE [Concomitant]
  7. FISH OIL [Concomitant]
  8. ATROVENT [Concomitant]
  9. FLOVENT [Concomitant]

REACTIONS (2)
  - FATIGUE [None]
  - NO THERAPEUTIC RESPONSE [None]
